FAERS Safety Report 15759257 (Version 3)
Quarter: 2019Q1

REPORT INFORMATION
  Report Type: Report from Study
  Country: US (occurrence: US)
  Receive Date: 20181226
  Receipt Date: 20190117
  Transmission Date: 20190417
  Serious: No
  Sender: FDA-Public Use
  Company Number: US-AMGEN INC.-USASP2018183946

PATIENT
  Age: 72 Year
  Sex: Female
  Weight: 60.2 kg

DRUGS (1)
  1. AIMOVIG [Suspect]
     Active Substance: ERENUMAB-AOOE
     Indication: MIGRAINE PROPHYLAXIS
     Dosage: 70 MG, QMO
     Route: 065
     Dates: start: 201809

REACTIONS (3)
  - Drug effect decreased [Unknown]
  - Wrong technique in product usage process [Unknown]
  - Constipation [Unknown]

NARRATIVE: CASE EVENT DATE: 2018
